FAERS Safety Report 9153373 (Version 2)
Quarter: 2013Q1

REPORT INFORMATION
  Report Type: Spontaneous
  Country: FR (occurrence: FR)
  Receive Date: 20130311
  Receipt Date: 20130319
  Transmission Date: 20140127
  Serious: Yes (Death)
  Sender: FDA-Public Use
  Company Number: FR-JNJFOC-20130300500

PATIENT
  Age: 79 Year
  Sex: Male
  Weight: 53 kg

DRUGS (4)
  1. ZYTIGA [Suspect]
     Indication: PREMEDICATION
     Dosage: SINCE 1 MONTH??4 TABLETS OF 250 MG
     Route: 048
     Dates: start: 20130210, end: 20130224
  2. ZYTIGA [Suspect]
     Indication: PROSTATE CANCER METASTATIC
     Dosage: SINCE 1 MONTH??4 TABLETS OF 250 MG
     Route: 048
     Dates: start: 20130210, end: 20130224
  3. ANTIARRHYTHMIC [Concomitant]
     Indication: PRODUCT USED FOR UNKNOWN INDICATION
     Route: 065
  4. PREDNISOLONE [Concomitant]
     Route: 065
     Dates: start: 20130210, end: 20130224

REACTIONS (5)
  - Atrial fibrillation [Fatal]
  - Acute pulmonary oedema [Fatal]
  - Left ventricular failure [Fatal]
  - Pneumonia aspiration [Fatal]
  - Acute respiratory failure [Fatal]
